FAERS Safety Report 12204424 (Version 2)
Quarter: 2016Q2

REPORT INFORMATION
  Report Type: Spontaneous
  Country: ES (occurrence: ES)
  Receive Date: 20160323
  Receipt Date: 20160415
  Transmission Date: 20160815
  Serious: Yes (Life-Threatening)
  Sender: FDA-Public Use
  Company Number: ES-BRACCO-001388

PATIENT
  Age: 72 Year
  Sex: Female
  Weight: 80 kg

DRUGS (1)
  1. MULTIHANCE [Suspect]
     Active Substance: GADOBENATE DIMEGLUMINE
     Indication: NUCLEAR MAGNETIC RESONANCE IMAGING SPINAL
     Dosage: SPEED 2 ML/SEC
     Route: 042
     Dates: start: 20160312, end: 20160312

REACTIONS (7)
  - Loss of consciousness [Recovered/Resolved]
  - Pulse absent [Recovered/Resolved]
  - Cardio-respiratory arrest [Recovered/Resolved]
  - Malaise [Recovered/Resolved]
  - Syncope [Recovered/Resolved]
  - Unresponsive to stimuli [Recovered/Resolved]
  - Mydriasis [Recovered/Resolved]

NARRATIVE: CASE EVENT DATE: 20160312
